FAERS Safety Report 12481365 (Version 1)
Quarter: 2016Q2

REPORT INFORMATION
  Report Type: Spontaneous
  Country: DE (occurrence: DE)
  Receive Date: 20160620
  Receipt Date: 20160620
  Transmission Date: 20160815
  Serious: Yes (Other)
  Sender: FDA-Public Use
  Company Number: DE-PFIZER INC-2016294933

PATIENT
  Age: 42 Year
  Sex: Male

DRUGS (3)
  1. VINCRISTINE SULFATE. [Suspect]
     Active Substance: VINCRISTINE SULFATE
     Indication: ACUTE LYMPHOCYTIC LEUKAEMIA
  2. DEXAMETHASONE. [Suspect]
     Active Substance: DEXAMETHASONE
     Indication: ACUTE LYMPHOCYTIC LEUKAEMIA
  3. PANOBINOSTAT [Suspect]
     Active Substance: PANOBINOSTAT
     Indication: ACUTE LYMPHOCYTIC LEUKAEMIA

REACTIONS (3)
  - Acute lymphocytic leukaemia [Unknown]
  - Disease progression [Unknown]
  - Facial paralysis [Unknown]

NARRATIVE: CASE EVENT DATE: 201604
